FAERS Safety Report 25245292 (Version 1)
Quarter: 2025Q2

REPORT INFORMATION
  Report Type: Spontaneous
  Country: RU (occurrence: RU)
  Receive Date: 20250428
  Receipt Date: 20250428
  Transmission Date: 20250717
  Serious: Yes (Death, Other)
  Sender: EXELIXIS
  Company Number: RU-IPSEN Group, Research and Development-2025-09235

PATIENT
  Age: 13 Year
  Sex: Female

DRUGS (2)
  1. CABOMETYX [Suspect]
     Active Substance: CABOZANTINIB S-MALATE
     Indication: Astrocytoma, low grade
     Route: 065
  2. CABOMETYX [Suspect]
     Active Substance: CABOZANTINIB S-MALATE
     Indication: Off label use

REACTIONS (13)
  - Death [Fatal]
  - Malignant neoplasm progression [Unknown]
  - Hypercholesterolaemia [Unknown]
  - Weight increased [Unknown]
  - Agitation [Unknown]
  - Irritability [Unknown]
  - Anxiety [Unknown]
  - Hypertriglyceridaemia [Unknown]
  - Oedema peripheral [Unknown]
  - Depression [Unknown]
  - Hypertension [Unknown]
  - Off label use [Unknown]
  - Off label use [Unknown]
